FAERS Safety Report 23719591 (Version 1)
Quarter: 2024Q2

REPORT INFORMATION
  Report Type: Spontaneous
  Country: US (occurrence: US)
  Receive Date: 20240408
  Receipt Date: 20240408
  Transmission Date: 20240716
  Serious: No
  Sender: FDA-Public Use
  Company Number: US-BAUSCH-BL-2024-005249

PATIENT
  Age: 89 Year
  Sex: Female

DRUGS (2)
  1. DIAZEPAM [Suspect]
     Active Substance: DIAZEPAM
     Indication: Seizure
     Dosage: AS NEEDED
     Route: 054
     Dates: start: 2023
  2. LEVETIRACETAM [Concomitant]
     Active Substance: LEVETIRACETAM
     Indication: Product used for unknown indication

REACTIONS (5)
  - Bedridden [Unknown]
  - Flatulence [Unknown]
  - Muscle twitching [Unknown]
  - Discharge [Unknown]
  - Incontinence [Unknown]

NARRATIVE: CASE EVENT DATE: 20240327
